FAERS Safety Report 9105699 (Version 1)
Quarter: 2013Q1

REPORT INFORMATION
  Report Type: Spontaneous
  Country: AR (occurrence: AR)
  Receive Date: 20130220
  Receipt Date: 20130220
  Transmission Date: 20140127
  Serious: Yes (Death)
  Sender: FDA-Public Use
  Company Number: PHHY2013AR016401

PATIENT
  Age: 74 Year
  Sex: Female

DRUGS (2)
  1. DIOVAN [Suspect]
     Dosage: 1 DF (VALS 80 MG), DAILY
     Route: 048
  2. DIOVAN [Suspect]
     Dosage: 1 DF (VALS 160 MG), DAILY
     Route: 048

REACTIONS (1)
  - Death [Fatal]
